FAERS Safety Report 7383583-1 (Version None)
Quarter: 2011Q1

REPORT INFORMATION
  Report Type: 
  Country: None (occurrence: None)
  Receive Date: 20110325
  Receipt Date: 20110325
  Transmission Date: 20110831
  Serious: Yes (Hospitalization)
  Sender: FDA-Public Use
  Company Number: None

PATIENT
  Sex: Female
  Weight: 56 kg

DRUGS (3)
  1. PACLITAXEL [Suspect]
     Dosage: 210 MG
  2. G-CSF (FILGRASTIM, AMGEN) [Suspect]
     Dosage: 6 MG
  3. IFOSFAMIDE [Suspect]
     Dosage: 7500 MG

REACTIONS (10)
  - HIATUS HERNIA [None]
  - SEROMA [None]
  - FLUID INTAKE REDUCED [None]
  - VOMITING [None]
  - ABSCESS [None]
  - DEHYDRATION [None]
  - SUPRAPUBIC PAIN [None]
  - CELLULITIS [None]
  - PUBIC PAIN [None]
  - DECREASED APPETITE [None]
